FAERS Safety Report 7117020 (Version 3)
Quarter: 2013Q3

REPORT INFORMATION
  Report Type: Spontaneous
  Country: None (occurrence: None)
  Receive Date: 20090908
  Receipt Date: 20130709
  Transmission Date: 20140515
  Serious: Yes (Hospitalization)
  Sender: FDA-Public Use
  Company Number: AUR-APU-2009-00560

PATIENT
  Age: 25 Day
  Sex: Male

DRUGS (6)
  1. ZIDOVUDINE [Suspect]
     Indication: PROPHYLAXIS
     Dosage: 4 MG/KG - Q12HOURS - FOR 7 DAYS AFTER BIRTH
  2. ZIDOVUDINE [Suspect]
     Indication: HUMAN IMMUNODEFICIENCY VIRUS TRANSMISSION
     Dosage: 4 MG/KG - Q12HOURS - FOR 7 DAYS AFTER BIRTH
  3. NEVIRAPINE [Suspect]
     Indication: PROPHYLAXIS
     Dosage: 2 MG/KG - X1 -  200MG - X1 - TRANSPLACENTALLY 1 DOSE AT ONSET OF LABOR
  4. NEVIRAPINE [Suspect]
     Indication: HUMAN IMMUNODEFICIENCY VIRUS TRANSMISSION
     Dosage: 2 MG/KG - X1 -  200MG - X1 - TRANSPLACENTALLY 1 DOSE AT ONSET OF LABOR
  5. EMTRICITABINE+TENOFOVIR [Suspect]
     Indication: PROPHYLAXIS
     Dosage: X1 - 1 DOSE AFTER BIRTH
  6. EMTRICITABINE+TENOFOVIR [Suspect]
     Indication: HUMAN IMMUNODEFICIENCY VIRUS TRANSMISSION
     Dosage: X1 - 1 DOSE AFTER BIRTH

REACTIONS (4)
  - Caesarean section [None]
  - Gastroenteritis [None]
  - Neonatal disorder [None]
  - Maternal drugs affecting foetus [None]
